FAERS Safety Report 5556770-2 (Version None)
Quarter: 2007Q4

REPORT INFORMATION
  Report Type: 
  Country: None (occurrence: None)
  Receive Date: 20071130
  Receipt Date: 20070628
  Transmission Date: 20080405
  Serious: No
  Sender: FDA-Public Use
  Company Number: 2006PV022609

PATIENT
  Age: 56 Year
  Sex: Female
  Weight: 87.5 kg

DRUGS (8)
  1. EXENATIDE(EXENATIDE) PEN,DISPOSABLE [Suspect]
     Indication: TYPE 2 DIABETES MELLITUS
     Dosage: 10 UG, 5 UG, 2/D, SUBCUTANEOUS
     Route: 058
     Dates: start: 20060803, end: 20061101
  2. EXENATIDE(EXENATIDE) PEN,DISPOSABLE [Suspect]
     Indication: TYPE 2 DIABETES MELLITUS
     Dosage: 10 UG, 5 UG, 2/D, SUBCUTANEOUS
     Route: 058
     Dates: start: 20061101
  3. EXENATIDE(EXENATIDE) PEN,DISPOSABLE [Suspect]
  4. NOVOLOG [Concomitant]
  5. DEPO-TESTOSTERONE [Concomitant]
  6. NOVOLIN 70/30 [Concomitant]
  7. NEXIUM [Concomitant]
  8. LANTUS [Concomitant]

REACTIONS (7)
  - BLOOD GLUCOSE DECREASED [None]
  - BLOOD GLUCOSE INCREASED [None]
  - DECREASED APPETITE [None]
  - NAUSEA [None]
  - NERVOUSNESS [None]
  - THERAPEUTIC RESPONSE UNEXPECTED [None]
  - WEIGHT DECREASED [None]
